FAERS Safety Report 9406213 (Version 1)
Quarter: 2013Q3

REPORT INFORMATION
  Report Type: Spontaneous
  Country: HR (occurrence: HR)
  Receive Date: 20130717
  Receipt Date: 20130717
  Transmission Date: 20140515
  Serious: Yes (Other)
  Sender: FDA-Public Use
  Company Number: HR-MERCK-1307HRV005673

PATIENT
  Age: 35 Year
  Sex: Male

DRUGS (1)
  1. AERIUS [Suspect]
     Indication: HYPERSENSITIVITY
     Dosage: 5 MG, QD
     Route: 048
     Dates: start: 201305, end: 201305

REACTIONS (4)
  - Arrhythmia [Recovered/Resolved]
  - Insomnia [Recovered/Resolved]
  - Palpitations [Recovered/Resolved]
  - Heart rate irregular [Recovered/Resolved]
